FAERS Safety Report 16674652 (Version 2)
Quarter: 2019Q3

REPORT INFORMATION
  Report Type: Report from Study
  Country: DE (occurrence: DE)
  Receive Date: 20190806
  Receipt Date: 20190808
  Transmission Date: 20191004
  Serious: Yes (Life-Threatening, Hospitalization, Other)
  Sender: FDA-Public Use
  Company Number: DE-AMGEN-DEUNI2019123606

PATIENT
  Age: 62 Year
  Sex: Male
  Weight: 127 kg

DRUGS (20)
  1. FOLINIC ACID [Suspect]
     Active Substance: LEUCOVORIN
     Indication: COLORECTAL CANCER METASTATIC
     Dosage: 850 MILLIGRAM
     Route: 065
     Dates: start: 20190515
  2. FLUOROURACIL. [Suspect]
     Active Substance: FLUOROURACIL
     Indication: COLORECTAL CANCER METASTATIC
     Dosage: 850 MILLIGRAM
     Route: 040
     Dates: start: 20190515
  3. FLUOROURACIL. [Suspect]
     Active Substance: FLUOROURACIL
     Dosage: 3840 MILLIGRAM
     Route: 042
     Dates: start: 20190723
  4. IRINOTECAN [Suspect]
     Active Substance: IRINOTECAN
     Dosage: 285 MILLIGRAM
     Route: 065
     Dates: start: 20190625, end: 20190625
  5. BISOPROLOL [Concomitant]
     Active Substance: BISOPROLOL
     Indication: HYPERTENSION
     Dosage: 5 MILLIGRAM, QD
     Route: 048
  6. RAMIPRIL. [Concomitant]
     Active Substance: RAMIPRIL
     Dosage: 1 UNK, QD
     Route: 048
     Dates: end: 20190625
  7. LERCANIDIPINE [Concomitant]
     Active Substance: LERCANIDIPINE
     Indication: HYPERTENSION
     Dosage: 10 MILLIGRAM, QD
     Route: 048
     Dates: end: 20190625
  8. IRINOTECAN [Suspect]
     Active Substance: IRINOTECAN
     Dosage: 190 MILLIGRAM
     Route: 065
     Dates: start: 20190723
  9. ACTOS [Concomitant]
     Active Substance: PIOGLITAZONE HYDROCHLORIDE
     Indication: DIABETES MELLITUS
     Dosage: 45 MILLIGRAM, QD
     Route: 048
  10. METFORMIN [Concomitant]
     Active Substance: METFORMIN HYDROCHLORIDE
     Indication: DIABETES MELLITUS
     Dosage: 1000 MILLIGRAM, BID
     Route: 048
  11. ALLOPURINOL. [Concomitant]
     Active Substance: ALLOPURINOL
     Indication: BLOOD URIC ACID INCREASED
     Dosage: 100 MILLIGRAM, QD
     Route: 048
  12. PANITUMUMAB [Suspect]
     Active Substance: PANITUMUMAB
     Indication: COLORECTAL CANCER METASTATIC
     Dosage: 600 MILLIGRAM
     Route: 042
     Dates: start: 20190515
  13. ATORVASTATIN [Concomitant]
     Active Substance: ATORVASTATIN
     Indication: HYPERCHOLESTEROLAEMIA
     Dosage: 80 MILLIGRAM, QD
     Route: 048
  14. TOUJEO [Concomitant]
     Active Substance: INSULIN GLARGINE
     Indication: DIABETES MELLITUS
     Dosage: 1 UNK, QD
     Route: 058
  15. ASPIRIN [ACETYLSALICYLIC ACID] [Concomitant]
     Active Substance: ASPIRIN
     Indication: PAIN
     Dosage: 100 MILLIGRAM, QD
     Route: 048
  16. ONDANSETRON [Concomitant]
     Active Substance: ONDANSETRON
     Indication: NAUSEA
     Dosage: 1 MILLIGRAM, QD
     Dates: start: 20190625
  17. IRINOTECAN [Suspect]
     Active Substance: IRINOTECAN
     Indication: COLORECTAL CANCER METASTATIC
     Dosage: 380 MILLIGRAM
     Route: 065
     Dates: start: 20190515, end: 20190612
  18. LIPROLOG [Concomitant]
     Active Substance: INSULIN LISPRO
     Indication: DIABETES MELLITUS
     Dosage: 1 UNK, QD
     Route: 058
  19. FLUOROURACIL. [Suspect]
     Active Substance: FLUOROURACIL
     Dosage: 5110 MILLIGRAM
     Route: 042
     Dates: start: 20190515, end: 20190625
  20. LONQUEX [Concomitant]
     Active Substance: LIPEGFILGRASTIM
     Indication: NEUTROPENIA
     Dosage: 6 MILLIGRAM
     Route: 058
     Dates: start: 20190723

REACTIONS (1)
  - Leukopenia [Recovered/Resolved]

NARRATIVE: CASE EVENT DATE: 20190701
